FAERS Safety Report 8591781-4 (Version None)
Quarter: 2012Q3

REPORT INFORMATION
  Report Type: 
  Country: None (occurrence: None)
  Receive Date: 20120814
  Receipt Date: 20120806
  Transmission Date: 20120928
  Serious: Yes (Other)
  Sender: FDA-Public Use
  Company Number: PHHY2011JP55793

PATIENT
  Age: 76 Year
  Sex: Male

DRUGS (4)
  1. IMATINIB MESYLATE [Suspect]
     Dosage: 100 MG, UNK
     Route: 048
     Dates: start: 20070101
  2. IMATINIB MESYLATE [Suspect]
     Indication: GASTROINTESTINAL STROMAL TUMOUR
     Dosage: 400 MG, UNK
     Route: 048
     Dates: start: 20040601
  3. SUNITINIB MALATE [Concomitant]
  4. IMATINIB MESYLATE [Suspect]
     Dosage: 400 MG, UNK
     Route: 048

REACTIONS (3)
  - NEOPLASM RECURRENCE [None]
  - INTERSTITIAL LUNG DISEASE [None]
  - NAUSEA [None]
